FAERS Safety Report 9969732 (Version 1)
Quarter: 2014Q1

REPORT INFORMATION
  Report Type: Spontaneous
  Country: US (occurrence: None)
  Receive Date: 20140304
  Receipt Date: 20140304
  Transmission Date: 20141002
  Serious: Yes (Hospitalization)
  Sender: FDA-Public Use
  Company Number: C-14-0078

PATIENT
  Age: 2 Month
  Sex: Male

DRUGS (1)
  1. PHENYTOIN [Suspect]
     Indication: CONVULSION
     Dosage: EVERY 8 HRS
     Route: 048
     Dates: start: 20140120, end: 20140130

REACTIONS (1)
  - Convulsion [None]
